FAERS Safety Report 16093245 (Version 2)
Quarter: 2019Q3

REPORT INFORMATION
  Report Type: Report from Study
  Country: None (occurrence: US)
  Receive Date: 20190320
  Receipt Date: 20190919
  Transmission Date: 20191004
  Serious: Yes (Other)
  Sender: FDA-Public Use
  Company Number: US-ABBVIE-19K-163-2707079-00

PATIENT
  Sex: Male

DRUGS (1)
  1. HUMIRA [Suspect]
     Active Substance: ADALIMUMAB
     Indication: PSORIASIS
     Route: 058

REACTIONS (5)
  - Amputation stump pain [Not Recovered/Not Resolved]
  - Psoriasis [Unknown]
  - Neuralgia [Unknown]
  - Diabetic complication [Unknown]
  - Weight increased [Unknown]

NARRATIVE: CASE EVENT DATE: 2019
